FAERS Safety Report 12541952 (Version 1)
Quarter: 2016Q3

REPORT INFORMATION
  Report Type: Spontaneous
  Country: GB (occurrence: GB)
  Receive Date: 20160708
  Receipt Date: 20160708
  Transmission Date: 20161109
  Serious: Yes (Other)
  Sender: FDA-Public Use
  Company Number: GB-MYLANLABS-2016M1027975

PATIENT

DRUGS (1)
  1. RISPERIDONE. [Suspect]
     Active Substance: RISPERIDONE
     Dosage: 2.5 ML, (MAXIMUM TWICE A DAY)
     Route: 048

REACTIONS (4)
  - Drug dispensing error [Unknown]
  - Malaise [Unknown]
  - Overdose [Unknown]
  - Syncope [Unknown]
